FAERS Safety Report 23813159 (Version 1)
Quarter: 2024Q2

REPORT INFORMATION
  Report Type: Spontaneous
  Country: US (occurrence: US)
  Receive Date: 20240503
  Receipt Date: 20240503
  Transmission Date: 20240715
  Serious: No
  Sender: FDA-Public Use
  Company Number: US-AMNEAL PHARMACEUTICALS-2024-AMRX-00327

PATIENT
  Sex: Male
  Weight: 14.512 kg

DRUGS (1)
  1. VIGABATRIN [Suspect]
     Active Substance: VIGABATRIN
     Indication: Product used for unknown indication
     Dosage: UNK, TWO TIMES PER DAY
     Route: 048
     Dates: start: 20240112

REACTIONS (1)
  - Muscle spasms [Not Recovered/Not Resolved]
